FAERS Safety Report 8292731-0 (Version None)
Quarter: 2012Q2

REPORT INFORMATION
  Report Type: 
  Country: None (occurrence: None)
  Receive Date: 20120417
  Receipt Date: 20110331
  Transmission Date: 20120825
  Serious: No
  Sender: FDA-Public Use
  Company Number: US-ASTRAZENECA-2011SE18468

PATIENT
  Age: 59 Year
  Sex: Female
  Weight: 131.5 kg

DRUGS (5)
  1. NEXIUM [Suspect]
     Indication: GASTROOESOPHAGEAL REFLUX DISEASE
     Route: 048
     Dates: start: 20080101
  2. LISINOPRIL [Concomitant]
  3. IBUPROFEN [Concomitant]
  4. MOBIC [Concomitant]
     Indication: ARTHRITIS
  5. HYDROCHLORTHIAZIDE [Concomitant]

REACTIONS (5)
  - WRIST FRACTURE [None]
  - FLATULENCE [None]
  - DRUG DOSE OMISSION [None]
  - TENDONITIS [None]
  - ERUCTATION [None]
